FAERS Safety Report 6119249-5 (Version None)
Quarter: 2009Q1

REPORT INFORMATION
  Report Type: 
  Country: None (occurrence: None)
  Receive Date: 20090316
  Receipt Date: 20090309
  Transmission Date: 20090719
  Serious: Yes (Death)
  Sender: FDA-Public Use
  Company Number: GB-ELI_LILLY_AND_COMPANY-GB200902007338

PATIENT
  Sex: Male
  Weight: 60 kg

DRUGS (1)
  1. XIGRIS [Suspect]
     Indication: SEPTIC SHOCK
     Dosage: UNK, DOUBLE THE NORMAL DOSE FOR 20 HRS
     Route: 042
     Dates: start: 20090224, end: 20090225

REACTIONS (3)
  - ACCIDENTAL OVERDOSE [None]
  - DEATH [None]
  - INCORRECT DOSE ADMINISTERED [None]
